FAERS Safety Report 7775087-9 (Version None)
Quarter: 2011Q3

REPORT INFORMATION
  Report Type: 
  Country: None (occurrence: None)
  Receive Date: 20110923
  Receipt Date: 20110914
  Transmission Date: 20111222
  Serious: Yes (Hospitalization, Other)
  Sender: FDA-Public Use
  Company Number: DE-GENENTECH-324636

PATIENT
  Age: 53 Year
  Sex: Female

DRUGS (10)
  1. ACTIVASE [Suspect]
     Indication: PULMONARY EMBOLISM
     Dosage: 50 MG, UNK
     Route: 065
  2. PACLITAXEL [Suspect]
     Indication: METASTATIC NEOPLASM
  3. CARBOPLATIN [Suspect]
     Indication: METASTATIC NEOPLASM
  4. FONDAPARINUX SODIUM [Suspect]
     Dosage: 5 MG, QD
  5. FONDAPARINUX SODIUM [Suspect]
     Dosage: 2.5 MG, QD
  6. ARGATROBAN [Suspect]
     Indication: PULMONARY EMBOLISM
     Dosage: UNK
     Route: 042
  7. CARBOPLATIN [Suspect]
     Indication: METASTASES TO LYMPH NODES
  8. DABIGATRAN ETEXILATE [Suspect]
     Indication: TROUSSEAU'S SYNDROME
     Dosage: 300 MG, BID
     Route: 048
  9. FONDAPARINUX SODIUM [Suspect]
     Indication: TROUSSEAU'S SYNDROME
     Dosage: 7.5 MG, QD
  10. PACLITAXEL [Suspect]
     Indication: METASTASES TO LYMPH NODES

REACTIONS (1)
  - HAEMOPTYSIS [None]
